FAERS Safety Report 22063428 (Version 1)
Quarter: 2023Q1

REPORT INFORMATION
  Report Type: Spontaneous
  Country: CO (occurrence: CO)
  Receive Date: 20230306
  Receipt Date: 20230306
  Transmission Date: 20230417
  Serious: Yes (Other)
  Sender: FDA-Public Use
  Company Number: CO-CELLTRION INC.-2022CO022273

PATIENT

DRUGS (1)
  1. INFLIXIMAB [Suspect]
     Active Substance: INFLIXIMAB
     Indication: Crohn^s disease
     Dosage: 600 MG C/D EVERY 45 DAYS
     Route: 042
     Dates: start: 20221031, end: 20221031

REACTIONS (5)
  - Intestinal haemorrhage [Recovered/Resolved]
  - Pyrexia [Recovering/Resolving]
  - Arthralgia [Recovered/Resolved]
  - Overdose [Unknown]
  - Off label use [Unknown]

NARRATIVE: CASE EVENT DATE: 20221031
